FAERS Safety Report 22260398 (Version 1)
Quarter: 2023Q2

REPORT INFORMATION
  Report Type: Spontaneous
  Country: DE (occurrence: None)
  Receive Date: 20230427
  Receipt Date: 20230427
  Transmission Date: 20230722
  Serious: Yes (Other)
  Sender: FDA-Public Use
  Company Number: 2023A092553

PATIENT
  Age: 74 Year
  Sex: Female
  Weight: 72 kg

DRUGS (8)
  1. DAPAGLIFLOZIN [Suspect]
     Active Substance: DAPAGLIFLOZIN
     Dosage: 10.0MG UNKNOWN
     Route: 048
  2. ENTRESTO [Concomitant]
     Active Substance: SACUBITRIL\VALSARTAN
  3. EPLERENONE [Concomitant]
     Active Substance: EPLERENONE
  4. TORSEMIDE [Concomitant]
     Active Substance: TORSEMIDE
  5. ASPIRIN [Concomitant]
     Active Substance: ASPIRIN
  6. PRASUGREL [Concomitant]
     Active Substance: PRASUGREL
  7. ROSUVASTATIN [Concomitant]
     Active Substance: ROSUVASTATIN
  8. EZETIMIBE [Concomitant]
     Active Substance: EZETIMIBE

REACTIONS (4)
  - Myocardial infarction [Unknown]
  - Cardiac failure [Unknown]
  - Pleural effusion [Unknown]
  - Coronary artery stenosis [Unknown]

NARRATIVE: CASE EVENT DATE: 20220703
